FAERS Safety Report 11718636 (Version 1)
Quarter: 2015Q4

REPORT INFORMATION
  Report Type: Spontaneous
  Country: US (occurrence: None)
  Receive Date: 20151109
  Receipt Date: 20151109
  Transmission Date: 20160304
  Serious: No
  Sender: FDA-Public Use
  Company Number: None

PATIENT
  Age: 43 Year
  Sex: Female

DRUGS (6)
  1. CAPECITABINE 500MG TEVA [Suspect]
     Active Substance: CAPECITABINE
     Indication: LIP NEOPLASM MALIGNANT STAGE UNSPECIFIED
     Route: 048
     Dates: start: 20151016
  2. AFINITOR [Concomitant]
     Active Substance: EVEROLIMUS
  3. LORATADINE. [Concomitant]
     Active Substance: LORATADINE
  4. DEXAMETHASON [Concomitant]
     Active Substance: DEXAMETHASONE
  5. CAPECITABINE 500MG TEVA [Suspect]
     Active Substance: CAPECITABINE
     Indication: BREAST CANCER
     Route: 048
     Dates: start: 20151016
  6. VICKS NYQUIL [Concomitant]
     Active Substance: ACETAMINOPHEN\DEXTROMETHORPHAN HYDROBROMIDE\DOXYLAMINE SUCCINATE

REACTIONS (4)
  - Nausea [None]
  - Fatigue [None]
  - Dizziness [None]
  - Stomatitis [None]
